FAERS Safety Report 17059466 (Version 2)
Quarter: 2019Q4

REPORT INFORMATION
  Report Type: Spontaneous
  Country: IT (occurrence: IT)
  Receive Date: 20191121
  Receipt Date: 20191227
  Transmission Date: 20200122
  Serious: Yes (Other)
  Sender: FDA-Public Use
  Company Number: IT-MYLANLABS-2019M1111006

PATIENT
  Age: 39 Year
  Sex: Male

DRUGS (1)
  1. QUETIAPINE. [Suspect]
     Active Substance: QUETIAPINE
     Indication: MELAS SYNDROME
     Dosage: 100 MILLIGRAM, QD

REACTIONS (1)
  - Therapy non-responder [Not Recovered/Not Resolved]

NARRATIVE: CASE EVENT DATE: 20190426
